FAERS Safety Report 9283123 (Version 1)
Quarter: 2013Q2

REPORT INFORMATION
  Report Type: Spontaneous
  Country: US (occurrence: US)
  Receive Date: 20130510
  Receipt Date: 20130510
  Transmission Date: 20140414
  Serious: No
  Sender: FDA-Public Use
  Company Number: US-GLAXOSMITHKLINE-A0981413A

PATIENT
  Age: 66 Year
  Sex: Female

DRUGS (6)
  1. TYKERB [Suspect]
     Indication: BREAST CANCER
     Dosage: 5TAB PER DAY
     Route: 048
     Dates: start: 20120608
  2. XELODA [Concomitant]
  3. MACRODANTIN [Concomitant]
  4. VITAMIN B6 [Concomitant]
  5. BENADRYL [Concomitant]
  6. OMEPRAZOLE [Concomitant]

REACTIONS (7)
  - Diarrhoea [Unknown]
  - Rash [Unknown]
  - Hypoaesthesia [Unknown]
  - Dyspepsia [Unknown]
  - Eructation [Unknown]
  - Stomatitis [Unknown]
  - Rash macular [Unknown]
